FAERS Safety Report 24637812 (Version 1)
Quarter: 2024Q4

REPORT INFORMATION
  Report Type: Spontaneous
  Country: CN (occurrence: CN)
  Receive Date: 20241119
  Receipt Date: 20241119
  Transmission Date: 20250115
  Serious: Yes (Hospitalization, Other)
  Sender: ORGANON
  Company Number: CN-ORGANON-O2411CHN000910

PATIENT
  Age: 61 Year
  Sex: Female
  Weight: 57 kg

DRUGS (13)
  1. FOSAMAX [Suspect]
     Active Substance: ALENDRONATE SODIUM
     Indication: Osteoporosis
     Dosage: 70 MILLIGRAM, ONCE WEEKLY
     Route: 048
     Dates: start: 20230419, end: 20230929
  2. FOSAMAX [Suspect]
     Active Substance: ALENDRONATE SODIUM
     Dosage: 70 MILLIGRAM, ONCE WEEKLY
     Route: 048
     Dates: start: 20231011, end: 20231227
  3. MINODRONIC ACID [Suspect]
     Active Substance: MINODRONIC ACID
     Indication: Osteoporosis postmenopausal
     Dosage: 50 MILLIGRAM, EVERY 4 WEEKS
     Route: 048
     Dates: start: 20230418
  4. MINODRONIC ACID [Suspect]
     Active Substance: MINODRONIC ACID
     Dosage: 50 MILLIGRAM, EVERY 4 WEEKS
     Route: 048
     Dates: start: 20230516
  5. MINODRONIC ACID [Suspect]
     Active Substance: MINODRONIC ACID
     Dosage: 50 MILLIGRAM, EVERY 4 WEEKS
     Route: 048
     Dates: start: 20230613
  6. MINODRONIC ACID [Suspect]
     Active Substance: MINODRONIC ACID
     Dosage: 50 MILLIGRAM, EVERY 4 WEEKS
     Route: 048
     Dates: start: 20230712
  7. MINODRONIC ACID [Suspect]
     Active Substance: MINODRONIC ACID
     Dosage: 50 MILLIGRAM, EVERY 4 WEEKS
     Route: 048
     Dates: start: 20230809
  8. MINODRONIC ACID [Suspect]
     Active Substance: MINODRONIC ACID
     Dosage: 50 MILLIGRAM, EVERY 4 WEEKS
     Route: 048
     Dates: start: 20230906
  9. MINODRONIC ACID [Suspect]
     Active Substance: MINODRONIC ACID
     Dosage: 50 MILLIGRAM, EVERY 4 WEEKS
     Route: 048
     Dates: start: 20231010
  10. MINODRONIC ACID [Suspect]
     Active Substance: MINODRONIC ACID
     Dosage: 50 MILLIGRAM, EVERY 4 WEEKS
     Route: 048
     Dates: start: 20231107
  11. MINODRONIC ACID [Suspect]
     Active Substance: MINODRONIC ACID
     Dosage: 50 MILLIGRAM, EVERY 4 WEEKS
     Route: 048
     Dates: start: 20231205
  12. MINODRONIC ACID [Suspect]
     Active Substance: MINODRONIC ACID
     Dosage: 50 MILLIGRAM, EVERY 4 WEEKS
     Route: 048
     Dates: start: 20240102
  13. CALCIUM CARBONATE\CHOLECALCIFEROL [Suspect]
     Active Substance: CALCIUM CARBONATE\CHOLECALCIFEROL
     Dosage: (CONTAINING 500 MG CALCIUM AND 200 IU VITAMIN D3) (1 TABLET, ONCE A DAY)
     Route: 048
     Dates: start: 20230418

REACTIONS (2)
  - Infective exacerbation of bronchiectasis [Recovering/Resolving]
  - Pneumonia pseudomonal [Recovering/Resolving]

NARRATIVE: CASE EVENT DATE: 20231216
